FAERS Safety Report 5807867-0 (Version None)
Quarter: 2008Q3

REPORT INFORMATION
  Report Type: 
  Country: None (occurrence: None)
  Receive Date: 20080711
  Receipt Date: 20080708
  Transmission Date: 20090109
  Serious: Yes (Hospitalization)
  Sender: FDA-Public Use
  Company Number: US-BOEHRINGER INGELHEIM GMBH, GERMANY-2008-BP-10696BP

PATIENT
  Sex: Male

DRUGS (10)
  1. SPIRIVA [Suspect]
     Indication: CHRONIC OBSTRUCTIVE PULMONARY DISEASE
     Route: 055
     Dates: start: 20040101
  2. ADVAIR DISKUS 100/50 [Concomitant]
     Indication: CHRONIC OBSTRUCTIVE PULMONARY DISEASE
  3. NEXIUM [Concomitant]
     Indication: GASTROOESOPHAGEAL REFLUX DISEASE
  4. DONNATAL [Concomitant]
     Indication: GASTRIC DISORDER
  5. LIBRAX [Concomitant]
     Indication: GASTRIC DISORDER
  6. IMDUR [Concomitant]
     Indication: HYPERTENSION
  7. PROCARDIA XL [Concomitant]
     Indication: CARDIAC DISORDER
  8. TOPROL-XL [Concomitant]
     Indication: HYPERTENSION
  9. VYTORIN [Concomitant]
     Indication: BLOOD CHOLESTEROL INCREASED
  10. PROSCAR [Concomitant]
     Indication: BENIGN PROSTATIC HYPERPLASIA

REACTIONS (3)
  - CONSTIPATION [None]
  - DRY MOUTH [None]
  - RETINAL DETACHMENT [None]
